FAERS Safety Report 5714521-2 (Version None)
Quarter: 2008Q2

REPORT INFORMATION
  Report Type: 
  Country: None (occurrence: None)
  Receive Date: 20080423
  Receipt Date: 20080415
  Transmission Date: 20081010
  Serious: Yes (Hospitalization)
  Sender: FDA-Public Use
  Company Number: US-ASTRAZENECA-2008UW07743

PATIENT
  Age: 65 Year
  Sex: Female
  Weight: 43.1 kg

DRUGS (9)
  1. PULMICORT RESPULES [Suspect]
     Indication: GRAFT VERSUS HOST DISEASE IN LUNG
     Route: 055
     Dates: start: 20060101
  2. XOPENEX [Concomitant]
  3. TOBRAMYCIN INHALATION [Concomitant]
  4. MEDROL [Concomitant]
  5. SINGULAIR [Concomitant]
  6. RESTASIS [Concomitant]
  7. PROCRAST [Concomitant]
     Route: 048
  8. V-FEN [Concomitant]
  9. MANY OTHER MEDS [Concomitant]

REACTIONS (1)
  - LUNG INFECTION [None]
